FAERS Safety Report 8531176-2 (Version None)
Quarter: 2012Q3

REPORT INFORMATION
  Report Type: 
  Country: None (occurrence: None)
  Receive Date: 20120723
  Receipt Date: 20120709
  Transmission Date: 20120928
  Serious: Yes (Hospitalization)
  Sender: FDA-Public Use
  Company Number: FR-ELI_LILLY_AND_COMPANY-FR201207002149

PATIENT
  Sex: Female

DRUGS (3)
  1. XANAX [Concomitant]
     Dosage: 0.5 MG, TID
     Route: 064
  2. CYMBALTA [Suspect]
     Indication: DEPRESSION
     Dosage: 60 MG, UNKNOWN
     Route: 064
  3. LAMALINE [Concomitant]
     Route: 064

REACTIONS (7)
  - AGITATION [None]
  - NEONATAL COMPLICATIONS OF SUBSTANCE ABUSE [None]
  - TREMOR [None]
  - FOETAL EXPOSURE DURING PREGNANCY [None]
  - CRYING [None]
  - DRUG WITHDRAWAL SYNDROME NEONATAL [None]
  - PREMATURE BABY [None]
